FAERS Safety Report 8049164-1 (Version None)
Quarter: 2012Q1

REPORT INFORMATION
  Report Type: 
  Country: None (occurrence: None)
  Receive Date: 20120117
  Receipt Date: 20120109
  Transmission Date: 20120608
  Serious: Yes (Other)
  Sender: FDA-Public Use
  Company Number: US-AMGEN-USASP2011069994

PATIENT
  Sex: Male

DRUGS (8)
  1. PREDNISONE TAB [Concomitant]
     Dosage: 60 MG, QD
     Route: 048
     Dates: start: 20110101, end: 20110401
  2. PREDNISONE TAB [Concomitant]
     Dosage: 5 MG, QD
     Route: 048
     Dates: start: 20110101, end: 20110401
  3. VICODIN [Concomitant]
     Dosage: UNK UNK, PRN
     Route: 064
  4. ENBREL [Suspect]
     Dosage: 50 MG, QWK
     Route: 064
     Dates: start: 20050906, end: 20101201
  5. PREDNISONE TAB [Concomitant]
     Dosage: 80 MG, QD
     Route: 064
     Dates: start: 20110101, end: 20110401
  6. PERCOCET [Concomitant]
     Dosage: UNK UNK, PRN
     Route: 064
  7. ZOFRAN [Concomitant]
     Dosage: UNK
     Route: 064
  8. PRENATAL VITAMINS                  /01549301/ [Concomitant]
     Dosage: UNK UNK, QD
     Route: 064

REACTIONS (1)
  - HYPOGLYCAEMIA NEONATAL [None]
